FAERS Safety Report 9774780 (Version 1)
Quarter: 2013Q4

REPORT INFORMATION
  Report Type: Spontaneous
  Country: GB (occurrence: None)
  Receive Date: 20131219
  Receipt Date: 20131219
  Transmission Date: 20140711
  Serious: Yes (Death)
  Sender: FDA-Public Use
  Company Number: None

PATIENT
  Age: 57 Year
  Sex: Male

DRUGS (2)
  1. CYCLOBENZAPRINE [Suspect]
     Indication: NECK PAIN
     Dates: start: 20130529, end: 20130823
  2. AMITRIPTYLINE HYDROCHLORIDE [Suspect]
     Indication: NECK PAIN
     Dates: start: 20130511, end: 20130823

REACTIONS (2)
  - Toxicity to various agents [None]
  - Alcohol use [None]
